FAERS Safety Report 6580335-7 (Version None)
Quarter: 2010Q1

REPORT INFORMATION
  Report Type: 
  Country: None (occurrence: None)
  Receive Date: 20100212
  Receipt Date: 20100111
  Transmission Date: 20100710
  Serious: No
  Sender: FDA-Public Use
  Company Number: US-ALLERGAN-1000287US

PATIENT
  Sex: Female

DRUGS (11)
  1. COMBIGAN [Suspect]
     Indication: GLAUCOMA
     Dosage: UNK
     Route: 047
     Dates: start: 20100107
  2. MOBIC [Concomitant]
  3. LOTEMAX [Concomitant]
  4. METFORMIN HPL [Concomitant]
  5. SYNTHROID [Concomitant]
  6. INDAPAMIDE [Concomitant]
  7. DIOVAN                             /01319601/ [Concomitant]
  8. ORPHENADRINE CITRATE [Concomitant]
  9. BUSPIRONE HCL [Concomitant]
  10. PROPOXYPHENE HCL [Concomitant]
  11. PREVACID [Concomitant]

REACTIONS (2)
  - CHEST DISCOMFORT [None]
  - COUGH [None]
